FAERS Safety Report 6336116-2 (Version None)
Quarter: 2009Q3

REPORT INFORMATION
  Report Type: 
  Country: None (occurrence: None)
  Receive Date: 20090901
  Receipt Date: 20090821
  Transmission Date: 20100115
  Serious: Yes (Death, Hospitalization)
  Sender: FDA-Public Use
  Company Number: DE-JNJFOC-20090801480

PATIENT
  Age: 67 Year
  Sex: Female
  Weight: 73 kg

DRUGS (3)
  1. CAELYX [Suspect]
     Indication: BREAST CANCER
     Dosage: 5 CYCLES
     Route: 042
  2. RISPERDAL [Suspect]
     Indication: DRUG USE FOR UNKNOWN INDICATION
     Route: 065
  3. BONDRONAT [Concomitant]
     Indication: BREAST CANCER
     Route: 065

REACTIONS (3)
  - CARDIAC ARREST [None]
  - CONVULSION [None]
  - PSYCHOTIC DISORDER [None]
